FAERS Safety Report 18525094 (Version 1)
Quarter: 2020Q4

REPORT INFORMATION
  Report Type: Spontaneous
  Country: GB (occurrence: GB)
  Receive Date: 20201119
  Receipt Date: 20201119
  Transmission Date: 20210114
  Serious: Yes (Hospitalization)
  Sender: FDA-Public Use
  Company Number: GB-009507513-2011GBR008976

PATIENT
  Age: 77 Year
  Sex: Female

DRUGS (2)
  1. PEMBROLIZUMAB. [Suspect]
     Active Substance: PEMBROLIZUMAB
     Dosage: 400 MG
     Dates: start: 20200717
  2. AXITINIB [Suspect]
     Active Substance: AXITINIB
     Dosage: 5 MG
     Dates: start: 20200717, end: 20200810

REACTIONS (2)
  - Cholangitis [Unknown]
  - Hepatitis [Unknown]
